FAERS Safety Report 24795068 (Version 1)
Quarter: 2024Q4

REPORT INFORMATION
  Report Type: Spontaneous
  Country: GB (occurrence: GB)
  Receive Date: 20241231
  Receipt Date: 20241231
  Transmission Date: 20250114
  Serious: Yes (Other)
  Sender: DAIICHI
  Company Number: None

PATIENT
  Age: 85 Year
  Sex: Male
  Weight: 55 kg

DRUGS (10)
  1. EDOXABAN [Suspect]
     Active Substance: EDOXABAN
     Indication: Thrombosis prophylaxis
     Dosage: 30 MG, QD (TAKE ONE TABLET DAILY TO THIN BLOOD - START THE...)
     Route: 065
     Dates: start: 20240719
  2. DERMATONICS ONCE HEEL [Concomitant]
     Indication: Ill-defined disorder
     Dosage: UNK UNK, ONCE EVERY 1 WK (APPLY ONCE WEEKLY)
     Route: 065
     Dates: start: 20240830, end: 20240927
  3. SOLIFENACIN [Concomitant]
     Active Substance: SOLIFENACIN
     Indication: Ill-defined disorder
     Dosage: 1 DOSAGE FORM, QD (1 EVERY DAY)
     Route: 065
     Dates: start: 20240515, end: 20240807
  4. BISOPROLOL [Concomitant]
     Active Substance: BISOPROLOL
     Indication: Ill-defined disorder
     Dosage: 1 DOSAGE FORM, QD (1 EVERY DAY)
     Route: 065
     Dates: start: 20240708
  5. AMOXICILLIN [Concomitant]
     Active Substance: AMOXICILLIN
     Indication: Ill-defined disorder
     Dosage: UNK (TAKE SIX TABLETS (3G) BEFORE DENTAL AND SURGICAL
     Route: 065
     Dates: start: 20240719
  6. ATORVASTATIN [Concomitant]
     Active Substance: ATORVASTATIN
     Indication: Ill-defined disorder
     Dosage: 1 DOSAGE FORM, QD (TAKE ONE DAILY)
     Route: 065
     Dates: start: 20240719
  7. CLOPIDOGREL [Concomitant]
     Active Substance: CLOPIDOGREL BISULFATE
     Indication: Ill-defined disorder
     Dosage: 1 DOSAGE FORM, QD (TAKE ONE ONCE DAILY)
     Route: 065
     Dates: start: 20240719
  8. DUTASTERIDE [Concomitant]
     Active Substance: DUTASTERIDE
     Indication: Ill-defined disorder
     Dosage: 1 DOSAGE FORM, QD (TAKE ONE DAILY)
     Route: 065
     Dates: start: 20240719
  9. TAMSULOSIN HYDROCHLORIDE [Concomitant]
     Active Substance: TAMSULOSIN HYDROCHLORIDE
     Indication: Ill-defined disorder
     Dosage: 1 DOSAGE FORM, QD (TAKE ONE DAILY)
     Route: 065
     Dates: start: 20240719
  10. TOLTERODINE TARTRATE [Concomitant]
     Active Substance: TOLTERODINE TARTRATE
     Indication: Ill-defined disorder
     Dosage: 1 DOSAGE FORM, BID (TAKE ONE TWICE DAILY)
     Route: 065
     Dates: start: 20240807

REACTIONS (2)
  - Synovial rupture [Unknown]
  - Haematoma muscle [Recovered/Resolved]

NARRATIVE: CASE EVENT DATE: 20230731
